FAERS Safety Report 13406229 (Version 1)
Quarter: 2017Q2

REPORT INFORMATION
  Report Type: Spontaneous
  Country: US (occurrence: US)
  Receive Date: 20170405
  Receipt Date: 20170405
  Transmission Date: 20170830
  Serious: No
  Sender: FDA-Public Use
  Company Number: US-ASTRAZENECA-2017SE32379

PATIENT
  Age: 874 Month
  Sex: Female
  Weight: 83 kg

DRUGS (3)
  1. FARXIGA [Suspect]
     Active Substance: DAPAGLIFLOZIN PROPANEDIOL
     Indication: TYPE 2 DIABETES MELLITUS
     Dosage: DAILY
     Route: 048
     Dates: start: 201701, end: 201701
  2. TRULICITY [Concomitant]
     Active Substance: DULAGLUTIDE
  3. METFORMIN [Concomitant]
     Active Substance: METFORMIN HYDROCHLORIDE

REACTIONS (2)
  - Weight increased [Recovering/Resolving]
  - Increased appetite [Recovering/Resolving]

NARRATIVE: CASE EVENT DATE: 201701
